FAERS Safety Report 10220896 (Version 2)
Quarter: 2014Q3

REPORT INFORMATION
  Report Type: Spontaneous
  Country: US (occurrence: US)
  Receive Date: 20140606
  Receipt Date: 20140815
  Transmission Date: 20150326
  Serious: Yes (Other)
  Sender: FDA-Public Use
  Company Number: US-JNJFOC-20140515882

PATIENT

DRUGS (1)
  1. LEVOFLOXACIN [Suspect]
     Active Substance: LEVOFLOXACIN
     Indication: LATENT TUBERCULOSIS
     Route: 065

REACTIONS (2)
  - Hallucination [Recovered/Resolved]
  - Sleep terror [Recovered/Resolved]
